FAERS Safety Report 11866332 (Version 1)
Quarter: 2015Q4

REPORT INFORMATION
  Report Type: Spontaneous
  Country: JP (occurrence: JP)
  Receive Date: 20151223
  Receipt Date: 20151223
  Transmission Date: 20160305
  Serious: Yes (Death)
  Sender: FDA-Public Use
  Company Number: JP-ROCHE-1682776

PATIENT
  Age: 71 Year
  Sex: Female

DRUGS (1)
  1. COPEGUS [Suspect]
     Active Substance: RIBAVIRIN
     Indication: PRODUCT USED FOR UNKNOWN INDICATION
     Dosage: DOSAGE IS UNCERTAIN.
     Route: 048

REACTIONS (1)
  - Aortic dissection [Fatal]

NARRATIVE: CASE EVENT DATE: 20150718
